FAERS Safety Report 4480535-6 (Version None)
Quarter: 2004Q4

REPORT INFORMATION
  Report Type: 
  Country: None (occurrence: None)
  Receive Date: 20041019
  Receipt Date: 20041006
  Transmission Date: 20050328
  Serious: Yes (Hospitalization, Other)
  Sender: FDA-Public Use
  Company Number: 2004059429

PATIENT
  Age: 79 Year
  Sex: Female
  Weight: 70 kg

DRUGS (7)
  1. SERTRALINE HYDROCHLORIDE [Suspect]
     Indication: DEPRESSION
     Dosage: 50 MG (1 IN 1 D), ORAL
     Route: 048
     Dates: start: 20010101
  2. DIGOXIN [Concomitant]
  3. ACENOCOUMAROL (ACENOCOUMAROL) [Concomitant]
  4. RAMIPRIL [Concomitant]
  5. MIANSERIN (MIANSERIN) [Concomitant]
  6. DONEPEZIL (DONEPEZIL) [Concomitant]
  7. ROSUVASTATIN (ROSUVASTATIN) [Concomitant]

REACTIONS (1)
  - ANAEMIA [None]
